FAERS Safety Report 6380402-7 (Version None)
Quarter: 2009Q3

REPORT INFORMATION
  Report Type: 
  Country: None (occurrence: None)
  Receive Date: 20090929
  Receipt Date: 20090921
  Transmission Date: 20100115
  Serious: Yes (Hospitalization, Other)
  Sender: FDA-Public Use
  Company Number: KR-BAYER-200923058GPV

PATIENT
  Age: 71 Year
  Sex: Male
  Weight: 62 kg

DRUGS (23)
  1. NEXAVAR [Suspect]
     Indication: HEPATIC NEOPLASM MALIGNANT
     Route: 048
     Dates: start: 20090421, end: 20090505
  2. NEXAVAR [Suspect]
     Route: 048
     Dates: start: 20090506, end: 20090520
  3. NEXAVAR [Suspect]
     Route: 048
     Dates: start: 20090701, end: 20090728
  4. SILYMARIN [Concomitant]
     Indication: LIVER DISORDER
     Route: 048
     Dates: start: 20020711
  5. URSODIOL [Concomitant]
     Indication: CHOLELITHIASIS
     Route: 048
     Dates: start: 20020711
  6. AROMIN [Concomitant]
     Route: 048
     Dates: start: 20020711
  7. ATENOLOL [Concomitant]
     Indication: HYPERTENSION
     Route: 048
     Dates: start: 20070305
  8. LAMIVUDINE [Concomitant]
     Indication: HEPATITIS B
     Route: 048
     Dates: start: 20090506
  9. AZELASTINE HCL [Concomitant]
     Indication: ANTIALLERGIC THERAPY
     Route: 048
     Dates: start: 20090507, end: 20090511
  10. LEVODROPROZINE [Concomitant]
     Indication: ANTITUSSIVE THERAPY
     Route: 048
     Dates: start: 20090507, end: 20090511
  11. BESZYME [Concomitant]
     Indication: DYSPEPSIA
     Route: 048
     Dates: start: 20090521, end: 20090528
  12. LOPERAMIDE OXIDE [Concomitant]
     Indication: DIARRHOEA
     Route: 048
     Dates: start: 20090521, end: 20090528
  13. MOSAPRIDE [Concomitant]
     Indication: ANTIEMETIC SUPPORTIVE CARE
     Route: 048
     Dates: start: 20090521, end: 20090528
  14. METFORMIN HCL [Concomitant]
     Indication: DIABETES MELLITUS
     Route: 048
     Dates: start: 20090101
  15. MAGNESIUM OXIDE [Concomitant]
     Indication: ABNORMAL FAECES
     Route: 048
     Dates: start: 20090728, end: 20090821
  16. CETAMADOL [Concomitant]
     Indication: ANALGESIC THERAPY
     Route: 048
     Dates: start: 20090804, end: 20090813
  17. FUROSEMIDE [Concomitant]
     Indication: DIURETIC THERAPY
     Route: 048
     Dates: start: 20090813, end: 20090816
  18. SPIRONOLACTONE [Concomitant]
     Indication: DIURETIC THERAPY
     Route: 048
     Dates: start: 20090813, end: 20090815
  19. LACTULOSE [Concomitant]
     Route: 048
     Dates: start: 20090818, end: 20090825
  20. MEPERIDINE HCL [Concomitant]
     Indication: ANALGESIC THERAPY
     Dosage: 1 AMPLE
     Route: 042
     Dates: start: 20090813, end: 20090825
  21. OXYCODONE HCL [Concomitant]
     Indication: ANALGESIC THERAPY
     Route: 048
     Dates: start: 20090815, end: 20090816
  22. MORPHINE HCL ELIXIR [Concomitant]
     Indication: ANALGESIC THERAPY
     Dosage: 1 AMPLE
     Route: 042
     Dates: start: 20090810, end: 20090811
  23. KETOLOLAC [Concomitant]
     Indication: ANALGESIC THERAPY
     Dosage: 3 AMPLE
     Route: 042
     Dates: start: 20090810, end: 20090811

REACTIONS (4)
  - CEREBRAL HAEMORRHAGE [None]
  - METASTASES TO CENTRAL NERVOUS SYSTEM [None]
  - MUSCULAR WEAKNESS [None]
  - THROMBOCYTOPENIA [None]
